FAERS Safety Report 7495971-3 (Version None)
Quarter: 2011Q2

REPORT INFORMATION
  Report Type: 
  Country: None (occurrence: None)
  Receive Date: 20110523
  Receipt Date: 20110513
  Transmission Date: 20111010
  Serious: Yes (Other)
  Sender: FDA-Public Use
  Company Number: GB-PFIZER INC-2011108054

PATIENT
  Age: 79 Year
  Sex: Male

DRUGS (8)
  1. CANDESARTAN [Concomitant]
     Dosage: UNK
     Dates: start: 20090101
  2. DOXAZOSIN [Concomitant]
     Dosage: UNK
     Dates: start: 20101105
  3. THYROXIN [Concomitant]
     Dosage: UNK
     Dates: start: 20080101
  4. ACETYLSALICYLIC ACID [Concomitant]
  5. AMIODARONE HCL [Suspect]
     Indication: ATRIAL FIBRILLATION
     Dosage: 200 MG, 2X/DAY
     Route: 048
     Dates: start: 20101207, end: 20110104
  6. SIMVASTATIN [Concomitant]
     Dosage: UNK
     Dates: start: 20090101
  7. WARFARIN [Concomitant]
     Dosage: UNK
     Dates: start: 20101207, end: 20110101
  8. FUROSEMIDE [Concomitant]
     Dosage: UNK
     Dates: start: 20101202, end: 20110101

REACTIONS (1)
  - BRONCHIECTASIS [None]
